FAERS Safety Report 24737322 (Version 1)
Quarter: 2024Q4

REPORT INFORMATION
  Report Type: Spontaneous
  Country: US (occurrence: US)
  Receive Date: 20241216
  Receipt Date: 20241216
  Transmission Date: 20250114
  Serious: No
  Sender: ALVOGEN
  Company Number: US-ALVOGEN-2024093242

PATIENT
  Sex: Female

DRUGS (2)
  1. FENTANYL [Suspect]
     Active Substance: FENTANYL
     Indication: Pain
     Dosage: ON TOP OF THORACIC AREA?25MCG ONCE THREE DAY
     Route: 062
     Dates: start: 20240227
  2. FENTANYL [Suspect]
     Active Substance: FENTANYL
     Indication: Pain
     Dosage: EXPIRY DATE: UU-JUL-2026
     Route: 062
     Dates: start: 20240227

REACTIONS (6)
  - Pain in extremity [Unknown]
  - Back pain [Unknown]
  - Injury [Unknown]
  - Condition aggravated [Unknown]
  - Withdrawal syndrome [Unknown]
  - Drug ineffective [Unknown]
